FAERS Safety Report 8379654-3 (Version None)
Quarter: 2012Q2

REPORT INFORMATION
  Report Type: 
  Country: None (occurrence: None)
  Receive Date: 20120523
  Receipt Date: 20120509
  Transmission Date: 20120825
  Serious: Yes (Hospitalization)
  Sender: FDA-Public Use
  Company Number: DK-CELGENEUS-044-20785-12022953

PATIENT
  Sex: Female

DRUGS (14)
  1. PREDNISONE TAB [Suspect]
     Route: 048
     Dates: start: 20110303, end: 20110306
  2. PROPRANOLOL [Concomitant]
     Indication: HYPERTENSION
     Route: 065
  3. PREDNISONE TAB [Suspect]
     Indication: MULTIPLE MYELOMA
     Route: 048
     Dates: start: 20100826
  4. THALIDOMIDE [Suspect]
     Dosage: DOSE REDUCED
     Route: 048
     Dates: start: 20100901, end: 20100923
  5. MELPHALAN HYDROCHLORIDE [Suspect]
     Indication: MULTIPLE MYELOMA
     Route: 048
     Dates: start: 20100826
  6. PREDNISONE TAB [Suspect]
     Route: 048
     Dates: end: 20110621
  7. ACYCLOVIR [Concomitant]
     Indication: PROPHYLAXIS
     Route: 065
  8. CENTYL [Concomitant]
     Indication: HYPERTENSION
     Route: 065
  9. THALIDOMIDE [Suspect]
     Indication: MULTIPLE MYELOMA
     Route: 048
     Dates: start: 20100826
  10. MELPHALAN [Suspect]
     Route: 048
     Dates: start: 20110303, end: 20110306
  11. METFORMIN HCL [Concomitant]
     Indication: DIABETES MELLITUS
     Route: 065
  12. THALIDOMIDE [Suspect]
     Dosage: 100 MILLIGRAM
     Route: 048
     Dates: end: 20101116
  13. MELPHALAN HYDROCHLORIDE [Suspect]
     Route: 048
     Dates: end: 20110621
  14. ARANESP [Concomitant]
     Indication: ANAEMIA
     Route: 065

REACTIONS (1)
  - UTERINE CANCER [None]
